FAERS Safety Report 24223227 (Version 1)
Quarter: 2024Q3

REPORT INFORMATION
  Report Type: Report from Study
  Country: GB (occurrence: GB)
  Receive Date: 20240819
  Receipt Date: 20240819
  Transmission Date: 20241016
  Serious: Yes (Other)
  Sender: MYLAN
  Company Number: GB-MYLANLABS-2024M1075966

PATIENT
  Sex: Male

DRUGS (1)
  1. GLATIRAMER ACETATE [Suspect]
     Active Substance: GLATIRAMER ACETATE
     Indication: Multiple sclerosis
     Dosage: 20 MILLIGRAM, QD (OD)
     Route: 058

REACTIONS (5)
  - Dementia [Unknown]
  - Condition aggravated [Unknown]
  - Confusional state [Unknown]
  - Infection [Unknown]
  - Product dose omission issue [Unknown]
